FAERS Safety Report 7265528-8 (Version None)
Quarter: 2011Q1

REPORT INFORMATION
  Report Type: 
  Country: None (occurrence: None)
  Receive Date: 20110131
  Receipt Date: 20110124
  Transmission Date: 20110831
  Serious: Yes (Other)
  Sender: FDA-Public Use
  Company Number: US-CEPHALON-2011000206

PATIENT
  Sex: Female
  Weight: 52 kg

DRUGS (1)
  1. NUVIGIL [Suspect]
     Route: 048
     Dates: start: 20100812, end: 20110110

REACTIONS (2)
  - GASTROINTESTINAL HYPERMOTILITY [None]
  - INSOMNIA [None]
